FAERS Safety Report 17561523 (Version 1)
Quarter: 2020Q1

REPORT INFORMATION
  Report Type: Spontaneous
  Country: US (occurrence: US)
  Receive Date: 20200319
  Receipt Date: 20200319
  Transmission Date: 20200409
  Serious: Yes (Hospitalization)
  Sender: FDA-Public Use
  Company Number: None

PATIENT
  Age: 48 Year
  Sex: Female

DRUGS (19)
  1. REGLAN [Concomitant]
     Active Substance: METOCLOPRAMIDE HYDROCHLORIDE
  2. FOLIC ACID. [Concomitant]
     Active Substance: FOLIC ACID
  3. RITALIN [Concomitant]
     Active Substance: METHYLPHENIDATE HYDROCHLORIDE
  4. ROPINIROLE. [Concomitant]
     Active Substance: ROPINIROLE
  5. GEMZAR [Concomitant]
     Active Substance: GEMCITABINE HYDROCHLORIDE
  6. PANTOPRAZOLE [Concomitant]
     Active Substance: PANTOPRAZOLE
  7. CAPECITABINE. [Suspect]
     Active Substance: CAPECITABINE
     Indication: PANCREATIC CARCINOMA
     Route: 048
     Dates: start: 20200127
  8. CREON [Concomitant]
     Active Substance: PANCRELIPASE AMYLASE\PANCRELIPASE LIPASE\PANCRELIPASE PROTEASE
  9. MORPHINE [Concomitant]
     Active Substance: MORPHINE
  10. PAROXETINE. [Concomitant]
     Active Substance: PAROXETINE
  11. ZYPREXA [Concomitant]
     Active Substance: OLANZAPINE
  12. TOPIRAMATE. [Concomitant]
     Active Substance: TOPIRAMATE
  13. FENTANYL. [Concomitant]
     Active Substance: FENTANYL
  14. IRON [Concomitant]
     Active Substance: IRON
  15. OXYCODONE [Concomitant]
     Active Substance: OXYCODONE
  16. VITAMIN D [Concomitant]
     Active Substance: VITAMIN D NOS
  17. LACTULOSE. [Concomitant]
     Active Substance: LACTULOSE
  18. MAG OX [Concomitant]
     Active Substance: MAGNESIUM OXIDE
  19. SEROQUEL [Concomitant]
     Active Substance: QUETIAPINE FUMARATE

REACTIONS (6)
  - Rash [None]
  - White blood cell count decreased [None]
  - Platelet count decreased [None]
  - Stomatitis [None]
  - Red blood cell count decreased [None]
  - Therapy cessation [None]

NARRATIVE: CASE EVENT DATE: 20200312
